FAERS Safety Report 18494434 (Version 3)
Quarter: 2020Q4

REPORT INFORMATION
  Report Type: Spontaneous
  Country: JP (occurrence: JP)
  Receive Date: 20201112
  Receipt Date: 20201125
  Transmission Date: 20210114
  Serious: Yes (Other)
  Sender: FDA-Public Use
  Company Number: JP-ASTELLAS-2020JP017185

PATIENT
  Age: 6 Year
  Sex: Female

DRUGS (7)
  1. BLINCYTO [Suspect]
     Active Substance: BLINATUMOMAB
     Dosage: UNK UNK, UNKNOWN FREQ.
     Route: 041
  2. BLINCYTO [Suspect]
     Active Substance: BLINATUMOMAB
     Dosage: UNK UNK, UNKNOWN FREQ.
     Route: 041
  3. INFLIXIMAB [Concomitant]
     Active Substance: INFLIXIMAB
     Indication: ACUTE GRAFT VERSUS HOST DISEASE
     Dosage: UNK UNK, UNKNOWN FREQ.
     Route: 065
  4. PROGRAF [Suspect]
     Active Substance: TACROLIMUS
     Indication: ACUTE LYMPHOCYTIC LEUKAEMIA
     Dosage: UNK UNK, UNKNOWN FREQ.
     Route: 065
  5. PROGRAF [Suspect]
     Active Substance: TACROLIMUS
     Dosage: UNK UNK, UNKNOWN FREQ.
     Route: 065
  6. RUXOLITINIB PHOSPHATE [Concomitant]
     Active Substance: RUXOLITINIB PHOSPHATE
     Indication: ACUTE GRAFT VERSUS HOST DISEASE
     Dosage: UNK UNK, UNKNOWN FREQ.
     Route: 065
  7. BLINCYTO [Suspect]
     Active Substance: BLINATUMOMAB
     Indication: PRODUCT USED FOR UNKNOWN INDICATION
     Dosage: UNK UNK, UNKNOWN FREQ.
     Route: 041

REACTIONS (5)
  - Pancytopenia [Recovered/Resolved]
  - Thrombotic microangiopathy [Recovered/Resolved]
  - Renal failure [Recovered/Resolved]
  - Blood lactate dehydrogenase increased [Recovered/Resolved]
  - Schizophrenia [Recovered/Resolved]

NARRATIVE: CASE EVENT DATE: 20200225
